FAERS Safety Report 25172446 (Version 1)
Quarter: 2025Q2

REPORT INFORMATION
  Report Type: Spontaneous
  Country: CN (occurrence: CN)
  Receive Date: 20250408
  Receipt Date: 20250408
  Transmission Date: 20250716
  Serious: Yes (Hospitalization)
  Sender: ROCHE
  Company Number: CN-ROCHE-10000246916

PATIENT
  Age: 64 Year
  Sex: Female
  Weight: 60 kg

DRUGS (6)
  1. BEVACIZUMAB [Suspect]
     Active Substance: BEVACIZUMAB
     Indication: Ovarian cancer
     Dosage: ACCORDING TO SOURCE DESCRIPTION, CHANGE THERAPY START DATE FROM 17-JAN-2025 TO 12-JUL-2024.
     Route: 042
     Dates: start: 20250117, end: 20250117
  2. CARBOPLATIN [Suspect]
     Active Substance: CARBOPLATIN
     Indication: Ovarian cancer
     Dosage: ACCORDING TO SOURCE DESCRIPTION, CHANGE THERAPY START DATE FROM 17-JAN-2025 TO 12-JUL-2024.
     Route: 042
     Dates: start: 20250117, end: 20250117
  3. DOXORUBICIN HYDROCHLORIDE [Suspect]
     Active Substance: DOXORUBICIN HYDROCHLORIDE
     Indication: Ovarian cancer
     Dosage: ACCORDING TO SOURCE DESCRIPTION, CHANGE THERAPY START DATE FROM 17-JAN-2025 TO 12-JUL-2024.
     Route: 042
     Dates: start: 20250117, end: 20250117
  4. SODIUM CHLORIDE [Concomitant]
     Active Substance: SODIUM CHLORIDE
     Route: 042
     Dates: start: 20250117, end: 20250117
  5. DEXTROSE [Concomitant]
     Active Substance: DEXTROSE MONOHYDRATE
     Route: 042
     Dates: start: 20250117, end: 20250117
  6. DEXTROSE [Concomitant]
     Active Substance: DEXTROSE MONOHYDRATE
     Route: 042
     Dates: start: 20250117, end: 20250117

REACTIONS (1)
  - Myelosuppression [Recovering/Resolving]

NARRATIVE: CASE EVENT DATE: 20250317
